FAERS Safety Report 19131852 (Version 4)
Quarter: 2021Q3

REPORT INFORMATION
  Report Type: Spontaneous
  Country: CA (occurrence: CA)
  Receive Date: 20210413
  Receipt Date: 20210820
  Transmission Date: 20211014
  Serious: Yes (Death, Hospitalization, Other)
  Sender: FDA-Public Use
  Company Number: CA-PFIZER INC-2021386813

PATIENT
  Age: 70 Year
  Sex: Male
  Weight: 144 kg

DRUGS (22)
  1. PERINDOPRIL [Concomitant]
     Active Substance: PERINDOPRIL
     Dosage: 2 MILLIGRAM, QD
     Route: 048
  2. VERSED [Suspect]
     Active Substance: MIDAZOLAM HYDROCHLORIDE
     Dosage: 1 MILLIGRAM
     Route: 030
  3. TIOTROPIUM BROMIDE [Suspect]
     Active Substance: TIOTROPIUM BROMIDE
     Dosage: 2 DF
     Route: 065
  4. BUDESONIDE/FORMOTEROL [Suspect]
     Active Substance: BUDESONIDE\FORMOTEROL
     Dosage: 2 DF
     Route: 065
  5. DILAUDID [Suspect]
     Active Substance: HYDROMORPHONE HYDROCHLORIDE
     Dosage: UNK
     Route: 042
  6. MEPOLIZUMAB [Suspect]
     Active Substance: MEPOLIZUMAB
     Indication: ASTHMA
     Dosage: 100 MG, MONTHLY
     Route: 042
     Dates: start: 2020
  7. ROBINUL [Suspect]
     Active Substance: GLYCOPYRROLATE
     Dosage: 0.4 MILLIGRAM
     Route: 065
  8. FLOMAX [Suspect]
     Active Substance: TAMSULOSIN HYDROCHLORIDE
     Dosage: 0.4 MILLIGRAM
     Route: 065
  9. BISOPROLOL [Concomitant]
     Active Substance: BISOPROLOL
     Dosage: 10 MILLIGRAM, QD
     Route: 048
  10. SPIRIVA [Concomitant]
     Active Substance: TIOTROPIUM BROMIDE MONOHYDRATE
     Dosage: UNK UNK, QD
     Route: 065
  11. PANTOPRAZOLE [Suspect]
     Active Substance: PANTOPRAZOLE
     Dosage: 40 MILLIGRAM
     Route: 065
  12. HALDOL [Suspect]
     Active Substance: HALOPERIDOL
     Dosage: UNK
     Route: 042
  13. ULORIC [Concomitant]
     Active Substance: FEBUXOSTAT
     Dosage: UNK UNK, QD
     Route: 048
  14. PREDNISONE. [Concomitant]
     Active Substance: PREDNISONE
     Dosage: 1 MILLIGRAM, QD
     Route: 048
  15. FLONASE [Suspect]
     Active Substance: FLUTICASONE PROPIONATE
     Dosage: UNK
     Route: 065
  16. LASIX [Concomitant]
     Active Substance: FUROSEMIDE
     Dosage: 20 MILLIGRAM, BID
     Route: 065
  17. LIPITOR [Concomitant]
     Active Substance: ATORVASTATIN CALCIUM
     Dosage: 10 MILLIGRAM, QD
     Route: 048
  18. GABAPENTIN. [Suspect]
     Active Substance: GABAPENTIN
     Dosage: 600 MILLIGRAM, BID
     Route: 048
  19. SODIUM CHLORIDE. [Suspect]
     Active Substance: SODIUM CHLORIDE
     Dosage: UNK
     Route: 065
  20. TYLENOL [Suspect]
     Active Substance: ACETAMINOPHEN
     Dosage: 650 MILLIGRAM
     Route: 065
  21. SENOKOT [Suspect]
     Active Substance: SENNOSIDES
     Dosage: 17.2 MILLIGRAM
     Route: 065
  22. OMEPRAZOLE. [Concomitant]
     Active Substance: OMEPRAZOLE
     Dosage: 10 MILLIGRAM, QD
     Route: 048

REACTIONS (35)
  - COVID-19 pneumonia [Fatal]
  - Hypoxia [Unknown]
  - Dyspnoea [Unknown]
  - Sputum discoloured [Unknown]
  - Troponin increased [Unknown]
  - Hyponatraemia [Unknown]
  - Malaise [Unknown]
  - Myoclonus [Unknown]
  - Neuralgia [Unknown]
  - Odynophagia [Unknown]
  - Somnolence [Unknown]
  - Tremor [Unknown]
  - Urinary incontinence [Unknown]
  - COVID-19 [Fatal]
  - Pulmonary embolism [Unknown]
  - Pneumonia [Unknown]
  - Anxiety [Unknown]
  - Dyspnoea paroxysmal nocturnal [Unknown]
  - General physical health deterioration [Unknown]
  - Orthopnoea [Unknown]
  - Umbilical hernia [Unknown]
  - Deep vein thrombosis [Unknown]
  - Lymphadenopathy [Unknown]
  - Wheezing [Unknown]
  - Respiratory failure [Unknown]
  - Productive cough [Unknown]
  - Hallucination [Unknown]
  - Oedema peripheral [Unknown]
  - Hypokalaemia [Unknown]
  - Contusion [Unknown]
  - Rhinorrhoea [Unknown]
  - Neurotoxicity [Unknown]
  - Confusional state [Unknown]
  - Dyspnoea exertional [Unknown]
  - Pyrexia [Unknown]

NARRATIVE: CASE EVENT DATE: 2020
